FAERS Safety Report 10645373 (Version 1)
Quarter: 2014Q4

REPORT INFORMATION
  Report Type: Spontaneous
  Country: US (occurrence: US)
  Receive Date: 20141211
  Receipt Date: 20141211
  Transmission Date: 20150529
  Serious: No
  Sender: FDA-Public Use
  Company Number: US-BAUSCH-BL-2014-007998

PATIENT
  Age: 56 Year
  Sex: Female

DRUGS (2)
  1. XENAZINE [Suspect]
     Active Substance: TETRABENAZINE
     Route: 048
     Dates: start: 20140918
  2. XENAZINE [Suspect]
     Active Substance: TETRABENAZINE
     Indication: EXTRAPYRAMIDAL DISORDER
     Route: 048
     Dates: start: 20130904

REACTIONS (2)
  - Intentional product use issue [Unknown]
  - Irritability [Recovered/Resolved]

NARRATIVE: CASE EVENT DATE: 20130904
